FAERS Safety Report 22367590 (Version 1)
Quarter: 2023Q2

REPORT INFORMATION
  Report Type: Spontaneous
  Country: US (occurrence: None)
  Receive Date: 20230525
  Receipt Date: 20230525
  Transmission Date: 20230722
  Serious: Yes (Hospitalization)
  Sender: FDA-Public Use
  Company Number: None

PATIENT
  Sex: Male

DRUGS (2)
  1. ADVATE [Suspect]
     Active Substance: ANTIHEMOPHILIC FACTOR, HUMAN RECOMBINANT
     Indication: Factor VIII deficiency
     Dosage: OTHER STRENGTH : 250U;?OTHER QUANTITY : 250 UNIT;?
     Route: 042
     Dates: start: 20210618
  2. AMINOCAPROIC ACID [Concomitant]
     Active Substance: AMINOCAPROIC ACID
     Dosage: OTHER STRENGTH : 0.25GM/ML;?

REACTIONS (3)
  - Spontaneous haemorrhage [None]
  - Soft tissue haemorrhage [None]
  - Wrist fracture [None]
